FAERS Safety Report 9879335 (Version 6)
Quarter: 2015Q3

REPORT INFORMATION
  Report Type: Spontaneous
  Country: US (occurrence: US)
  Receive Date: 20140206
  Receipt Date: 20150710
  Transmission Date: 20151125
  Serious: Yes (Disabling, Other)
  Sender: FDA-Public Use
  Company Number: US-GE HEALTHCARE MEDICAL DIAGNOSTICS-OSCN-PR-1401S-0007

PATIENT
  Age: 54 Year
  Sex: Female

DRUGS (37)
  1. OMNISCAN [Suspect]
     Active Substance: GADODIAMIDE
     Indication: DIAGNOSTIC PROCEDURE
     Route: 065
     Dates: start: 20050202, end: 20050202
  2. OMNISCAN [Suspect]
     Active Substance: GADODIAMIDE
     Indication: PERIPHERAL VASCULAR DISORDER
  3. OMNISCAN [Suspect]
     Active Substance: GADODIAMIDE
     Indication: PYREXIA
  4. LANTUS [Concomitant]
     Active Substance: INSULIN GLARGINE
     Indication: DIABETES MELLITUS
     Dates: start: 2003, end: 2013
  5. METOPROLOL [Concomitant]
     Active Substance: METOPROLOL
     Dates: start: 2007, end: 2013
  6. RAPAMUNE [Concomitant]
     Active Substance: SIROLIMUS
     Dates: start: 2007, end: 2013
  7. ASPIRIN. [Concomitant]
     Active Substance: ASPIRIN
     Dates: start: 2003, end: 2013
  8. OMNISCAN [Suspect]
     Active Substance: GADODIAMIDE
     Indication: RENAL CYST
     Dosage: DOSE NOT REPORTED
     Route: 065
     Dates: start: 20030506, end: 20030506
  9. OPTIMARK [Suspect]
     Active Substance: GADOVERSETAMIDE
     Indication: ASTHENIA
  10. PREDNISONE. [Concomitant]
     Active Substance: PREDNISONE
     Indication: TEMPORAL ARTERITIS
  11. LIPITOR [Concomitant]
     Active Substance: ATORVASTATIN CALCIUM
     Dates: end: 2013
  12. LASIX [Concomitant]
     Active Substance: FUROSEMIDE
     Dates: start: 2004, end: 2013
  13. NEORAL [Concomitant]
     Active Substance: CYCLOSPORINE
     Dates: start: 2007, end: 2013
  14. OMNISCAN [Suspect]
     Active Substance: GADODIAMIDE
     Indication: PRODUCT USED FOR UNKNOWN INDICATION
     Route: 065
     Dates: start: 20050206, end: 20050206
  15. PREDNISONE. [Concomitant]
     Active Substance: PREDNISONE
     Indication: TEMPORAL ARTERITIS
     Dates: start: 2003, end: 2013
  16. MULTIVITAMIN [Concomitant]
     Active Substance: VITAMINS
     Dates: start: 2007, end: 2013
  17. OMNISCAN [Suspect]
     Active Substance: GADODIAMIDE
     Indication: ADRENAL MASS
     Route: 065
     Dates: start: 20040106, end: 20040106
  18. OPTIMARK [Suspect]
     Active Substance: GADOVERSETAMIDE
     Indication: CONFUSIONAL STATE
  19. MAGNEVIST [Suspect]
     Active Substance: GADOPENTETATE DIMEGLUMINE
     Dosage: DOSE NOT REPORTED
     Route: 065
     Dates: start: 20031204, end: 20031204
  20. ISOVUE [Suspect]
     Active Substance: IOPAMIDOL
     Indication: PYREXIA
     Route: 065
     Dates: start: 20090405, end: 20090405
  21. ISOVUE [Suspect]
     Active Substance: IOPAMIDOL
     Indication: DIAGNOSTIC PROCEDURE
  22. NEURONTIN [Concomitant]
     Active Substance: GABAPENTIN
  23. PAXIL [Concomitant]
     Active Substance: PAROXETINE HYDROCHLORIDE
     Indication: DEPRESSION
  24. COUMADIN [Concomitant]
     Active Substance: WARFARIN SODIUM
     Dates: end: 2013
  25. HUMALOG [Concomitant]
     Active Substance: INSULIN LISPRO
     Indication: DIABETES MELLITUS
     Dates: start: 2003, end: 2013
  26. NORCO [Concomitant]
     Active Substance: ACETAMINOPHEN\HYDROCODONE BITARTRATE
     Indication: PAIN
     Dates: start: 2012, end: 2013
  27. OPTIMARK [Concomitant]
     Active Substance: GADOVERSETAMIDE
     Indication: ANAEMIA
     Dates: start: 2007, end: 2013
  28. OMNISCAN [Suspect]
     Active Substance: GADODIAMIDE
     Indication: DIAGNOSTIC PROCEDURE
  29. OMNISCAN [Suspect]
     Active Substance: GADODIAMIDE
     Indication: HYPERTENSION
  30. OMNISCAN [Suspect]
     Active Substance: GADODIAMIDE
     Indication: VOMITING
  31. OPTIMARK [Suspect]
     Active Substance: GADOVERSETAMIDE
     Indication: HYPERTENSION
     Route: 065
     Dates: start: 20061111, end: 20061111
  32. OMNISCAN [Suspect]
     Active Substance: GADODIAMIDE
     Indication: RENAL FAILURE
  33. BACTRIM [Concomitant]
     Active Substance: SULFAMETHOXAZOLE\TRIMETHOPRIM
     Dates: start: 2007, end: 2013
  34. OMNISCAN [Suspect]
     Active Substance: GADODIAMIDE
     Indication: HYPERGLYCAEMIA
  35. DARVOCET-N 100 [Concomitant]
     Active Substance: ACETAMINOPHEN\PROPOXYPHENE NAPSYLATE
     Indication: OSTEOARTHRITIS
  36. OMNISCAN [Suspect]
     Active Substance: GADODIAMIDE
     Indication: PEDAL PULSE DECREASED
  37. XARELTO [Concomitant]
     Active Substance: RIVAROXABAN
     Dates: end: 2012

REACTIONS (6)
  - Scleroderma [Not Recovered/Not Resolved]
  - Nephrogenic systemic fibrosis [Unknown]
  - Arthralgia [Not Recovered/Not Resolved]
  - Mobility decreased [Not Recovered/Not Resolved]
  - Myalgia [Not Recovered/Not Resolved]
  - Discomfort [Not Recovered/Not Resolved]

NARRATIVE: CASE EVENT DATE: 200312
